FAERS Safety Report 8512505-2 (Version None)
Quarter: 2012Q3

REPORT INFORMATION
  Report Type: 
  Country: None (occurrence: None)
  Receive Date: 20120716
  Receipt Date: 20120711
  Transmission Date: 20120928
  Serious: Yes (Other)
  Sender: FDA-Public Use
  Company Number: JP-GLAXOSMITHKLINE-B0802175A

PATIENT
  Sex: Male
  Weight: 21.5 kg

DRUGS (5)
  1. MEIACT [Concomitant]
     Indication: PHARYNGITIS
     Dosage: 240MG PER DAY
     Route: 048
     Dates: start: 20120213, end: 20120220
  2. LEFTOSE [Concomitant]
     Indication: PHARYNGITIS
     Route: 048
     Dates: start: 20120213, end: 20120220
  3. IBRUPROFEN [Concomitant]
     Indication: PHARYNGITIS
     Route: 048
     Dates: start: 20120213, end: 20120216
  4. RELENZA [Suspect]
     Indication: INFLUENZA
     Dosage: 20MG PER DAY
     Route: 055
     Dates: start: 20120213, end: 20120215
  5. ZESULAN [Concomitant]
     Route: 048

REACTIONS (6)
  - NIGHTMARE [None]
  - POOR QUALITY SLEEP [None]
  - HALLUCINATION [None]
  - DEPRESSED LEVEL OF CONSCIOUSNESS [None]
  - FEAR [None]
  - PYREXIA [None]
